FAERS Safety Report 24528564 (Version 1)
Quarter: 2024Q4

REPORT INFORMATION
  Report Type: Spontaneous
  Country: US (occurrence: None)
  Receive Date: 20241018
  Receipt Date: 20241018
  Transmission Date: 20250114
  Serious: Yes (Death)
  Sender: Public
  Company Number: None

PATIENT
  Age: 65 Year
  Sex: Male

DRUGS (4)
  1. PIRFENIDONE [Suspect]
     Active Substance: PIRFENIDONE
     Indication: Idiopathic pulmonary fibrosis
     Dosage: FREQUENCY : DAILY;?
     Route: 048
     Dates: start: 20181112, end: 20230730
  2. NIFEDIPINE [Concomitant]
  3. GABAPENTIN [Concomitant]
     Active Substance: GABAPENTIN
  4. BENZONATATE [Concomitant]

REACTIONS (4)
  - Acute respiratory failure [None]
  - Pulmonary embolism [None]
  - Pulmonary hypertension [None]
  - Systolic dysfunction [None]

NARRATIVE: CASE EVENT DATE: 20230723
